FAERS Safety Report 8548881-4 (Version None)
Quarter: 2012Q3

REPORT INFORMATION
  Report Type: 
  Country: None (occurrence: None)
  Receive Date: 20120730
  Receipt Date: 20120726
  Transmission Date: 20120928
  Serious: Yes (Other)
  Sender: FDA-Public Use
  Company Number: PHHY2012JP064758

PATIENT
  Age: 75 Year
  Sex: Female

DRUGS (2)
  1. ZOMETA [Suspect]
     Dosage: 4 MG, EVERY 4 WEEKS FOR 4 MONTHS
     Route: 042
  2. AREDIA [Suspect]
     Dosage: 1455 MG, FOR 45 MONTHS
     Route: 042

REACTIONS (2)
  - EXPOSED BONE IN JAW [None]
  - OSTEONECROSIS OF JAW [None]
